FAERS Safety Report 16916452 (Version 2)
Quarter: 2019Q4

REPORT INFORMATION
  Report Type: Spontaneous
  Country: US (occurrence: US)
  Receive Date: 20191014
  Receipt Date: 20191118
  Transmission Date: 20200122
  Serious: Yes (Hospitalization)
  Sender: FDA-Public Use
  Company Number: US-THE RITEDOSE CORPORATION-2019RIT000292

PATIENT

DRUGS (2)
  1. IPRATROPIUM BROMIDE INHALATION SOLUTION [Suspect]
     Active Substance: IPRATROPIUM BROMIDE
     Indication: ASTHMA
     Dosage: FULL DOSE, UNK
     Route: 055
     Dates: start: 2018, end: 2018
  2. IPRATROPIUM BROMIDE INHALATION SOLUTION [Suspect]
     Active Substance: IPRATROPIUM BROMIDE
     Dosage: HALF DOSE, UNK
     Route: 055
     Dates: start: 2018

REACTIONS (11)
  - Dyspnoea [Recovered/Resolved]
  - Bronchitis [Recovered/Resolved]
  - Influenza [Recovered/Resolved]
  - Product label issue [Unknown]
  - Product container issue [Unknown]
  - Palpitations [Recovered/Resolved]
  - Immune system disorder [Recovered/Resolved]
  - Asthma [Recovered/Resolved]
  - Product appearance confusion [Unknown]
  - Product use in unapproved indication [Unknown]
  - Incorrect dose administered [Unknown]

NARRATIVE: CASE EVENT DATE: 2018
